FAERS Safety Report 18721077 (Version 1)
Quarter: 2021Q1

REPORT INFORMATION
  Report Type: Spontaneous
  Country: US (occurrence: US)
  Receive Date: 20210109
  Receipt Date: 20210109
  Transmission Date: 20210419
  Serious: No
  Sender: FDA-Public Use
  Company Number: US-ELI_LILLY_AND_COMPANY-US202101001967

PATIENT
  Sex: Male

DRUGS (2)
  1. INSULIN LISPRO LILLY [Suspect]
     Active Substance: INSULIN LISPRO
     Dosage: 8 U, BID
     Route: 058
  2. INSULIN LISPRO LILLY [Suspect]
     Active Substance: INSULIN LISPRO
     Indication: DIABETES MELLITUS
     Dosage: 8 U, BID
     Route: 058

REACTIONS (1)
  - Incorrect dose administered [Unknown]
